FAERS Safety Report 13017981 (Version 1)
Quarter: 2016Q4

REPORT INFORMATION
  Report Type: Report from Study
  Country: US (occurrence: US)
  Receive Date: 20161212
  Receipt Date: 20161212
  Transmission Date: 20170207
  Serious: Yes (Other)
  Sender: FDA-Public Use
  Company Number: US-SA-2013SA112865

PATIENT
  Age: 59 Year
  Sex: Female

DRUGS (1)
  1. AUBAGIO [Suspect]
     Active Substance: TERIFLUNOMIDE
     Indication: MULTIPLE SCLEROSIS
     Route: 048
     Dates: start: 20130515

REACTIONS (4)
  - Clostridium difficile infection [Recovered/Resolved]
  - Diarrhoea [Recovered/Resolved]
  - Fatigue [Unknown]
  - Cystitis [Recovered/Resolved]
